FAERS Safety Report 8135446-1 (Version None)
Quarter: 2012Q1

REPORT INFORMATION
  Report Type: 
  Country: None (occurrence: None)
  Receive Date: 20120214
  Receipt Date: 20120213
  Transmission Date: 20120608
  Serious: Yes (Hospitalization, Other)
  Sender: FDA-Public Use
  Company Number: FR-JNJFOC-20120204361

PATIENT
  Age: 31 Year
  Sex: Female

DRUGS (15)
  1. IV FLUIDS [Suspect]
     Dosage: CYCLE 3
     Route: 042
  2. METOCLOPRAMIDE [Concomitant]
     Indication: PROPHYLAXIS OF NAUSEA AND VOMITING
     Route: 042
  3. DOXORUBICIN HCL [Suspect]
     Indication: SARCOMA
     Dosage: CYCLE 1
     Route: 040
  4. IFOSFAMIDE [Suspect]
     Dosage: CYCLE 1
     Route: 042
  5. DOXORUBICIN HCL [Suspect]
     Dosage: CYCLE 3
     Route: 040
  6. DOXORUBICIN HCL [Suspect]
     Dosage: CYCLE 1
     Route: 040
  7. IV FLUIDS [Suspect]
     Dosage: CYCLE 2
     Route: 042
  8. IFOSFAMIDE [Suspect]
     Dosage: CYCLE 2
     Route: 042
  9. IV FLUIDS [Suspect]
     Indication: SARCOMA
     Dosage: CYCLE 1
     Route: 042
  10. DOXORUBICIN HCL [Suspect]
     Dosage: CYCLE 3
     Route: 040
  11. DOXORUBICIN HCL [Suspect]
     Dosage: CYCLE 2
     Route: 040
  12. DOXORUBICIN HCL [Suspect]
     Dosage: CYCLE 2
     Route: 040
  13. IFOSFAMIDE [Suspect]
     Indication: SARCOMA
     Dosage: CYCLE 2
     Route: 042
  14. ONDANSETRON [Concomitant]
     Indication: PROPHYLAXIS OF NAUSEA AND VOMITING
     Route: 065
  15. NEUPOGEN [Suspect]
     Indication: SARCOMA
     Route: 065

REACTIONS (6)
  - MATERNAL EXPOSURE DURING PREGNANCY [None]
  - NEUTROPENIA [None]
  - PREMATURE DELIVERY [None]
  - ALOPECIA [None]
  - INFECTION [None]
  - FEBRILE NEUTROPENIA [None]
